FAERS Safety Report 11344146 (Version 1)
Quarter: 2015Q3

REPORT INFORMATION
  Report Type: Spontaneous
  Country: US (occurrence: None)
  Receive Date: 20150804
  Receipt Date: 20150804
  Transmission Date: 20151125
  Serious: No
  Sender: FDA-Public Use
  Company Number: None

PATIENT
  Age: 41 Year
  Sex: Female

DRUGS (11)
  1. PLAQUENIL [Concomitant]
     Active Substance: HYDROXYCHLOROQUINE SULFATE
  2. AZATHIOPRINE (IMURAN) [Concomitant]
  3. LIORESAL [Concomitant]
     Active Substance: BACLOFEN
  4. AMPYRA [Suspect]
     Active Substance: DALFAMPRIDINE
     Indication: MULTIPLE SCLEROSIS
     Route: 048
     Dates: start: 201505
  5. VITAMIN D2 [Concomitant]
     Active Substance: ERGOCALCIFEROL
  6. PLAQUENIL [Concomitant]
     Active Substance: HYDROXYCHLOROQUINE SULFATE
  7. BENZONATALE (TESSALON PERLES) [Concomitant]
  8. ERGOCAL [Concomitant]
  9. VITAMIN D ORAL [Concomitant]
  10. WARFARIN (COUMADIN) [Concomitant]
  11. CIFEROL [Concomitant]

REACTIONS (7)
  - Haemoglobin abnormal [None]
  - Mean cell haemoglobin decreased [None]
  - Mean cell haemoglobin concentration abnormal [None]
  - Haematocrit abnormal [None]
  - Red cell distribution width abnormal [None]
  - Red blood cell count abnormal [None]
  - Mean cell volume abnormal [None]

NARRATIVE: CASE EVENT DATE: 20150802
